FAERS Safety Report 5080782-9 (Version None)
Quarter: 2006Q3

REPORT INFORMATION
  Report Type: 
  Country: None (occurrence: None)
  Receive Date: 20060809
  Receipt Date: 20060724
  Transmission Date: 20061208
  Serious: Yes (Hospitalization)
  Sender: FDA-Public Use
  Company Number: 223547

PATIENT
  Age: 56 Year
  Sex: Male
  Weight: 66 kg

DRUGS (8)
  1. BEVACIZUMAB (BEVACIZUMAB) PWDR + SOLVENT, INFUSION SOLN, 100MG [Suspect]
     Indication: NON-SMALL CELL LUNG CANCER
     Dosage: 495 MG, Q3W, INTRAVENOUS
     Route: 042
     Dates: start: 20051026, end: 20051227
  2. CISPLATIN [Suspect]
     Indication: NON-SMALL CELL LUNG CANCER
     Dosage: 110 MG, Q3W, INTRAVENOUS
     Route: 042
     Dates: start: 20051026, end: 20051220
  3. GEMCITABINE [Suspect]
     Indication: NON-SMALL CELL LUNG CANCER
     Dosage: 1700 MG, DAY1+8/Q3W, INTRAVENOUS
     Route: 042
     Dates: start: 20051026, end: 20051227
  4. ZOFRAN [Concomitant]
  5. VERGENTAN (ALIZAPRIDE HYDROCHLORIDE) [Concomitant]
  6. ATORVASTATIN CALCIUM [Concomitant]
  7. DECENTAN (PERPHENAZINE) [Concomitant]
  8. ACETYLCYSTEINE [Concomitant]

REACTIONS (1)
  - BRONCHOPNEUMONIA [None]
